FAERS Safety Report 4312512-X (Version None)
Quarter: 2004Q1

REPORT INFORMATION
  Report Type: 
  Country: None (occurrence: None)
  Receive Date: 20040303
  Receipt Date: 20040218
  Transmission Date: 20041129
  Serious: Yes (Hospitalization)
  Sender: FDA-Public Use
  Company Number: 2004JP000283

PATIENT
  Age: 29 Year
  Sex: Female
  Weight: 43.2 kg

DRUGS (2)
  1. PROGRAF [Suspect]
     Indication: RENAL TRANSPLANT
  2. TOFISOPAM (TOFISOPAM) [Suspect]
     Dosage: UID/QD

REACTIONS (3)
  - ADENOVIRAL HAEMORRHAGIC CYSTITIS [None]
  - DRUG INTERACTION [None]
  - DRUG LEVEL INCREASED [None]
